FAERS Safety Report 10658118 (Version 1)
Quarter: 2014Q4

REPORT INFORMATION
  Report Type: Spontaneous
  Country: US (occurrence: US)
  Receive Date: 20141217
  Receipt Date: 20141217
  Transmission Date: 20150529
  Serious: No
  Sender: FDA-Public Use
  Company Number: US-GLAXOSMITHKLINE-A1064146A

PATIENT

DRUGS (8)
  1. VOTRIENT [Suspect]
     Active Substance: PAZOPANIB HYDROCHLORIDE
     Indication: PRODUCT USED FOR UNKNOWN INDICATION
     Dosage: 200 MG TABLETS, 4 TABLETS EVERY DAY ONE HOUR BEFORE OR 2 HOURS AFTER EATING
     Route: 048
  2. DIGOXIN. [Concomitant]
     Active Substance: DIGOXIN
  3. LORAZEPAM. [Concomitant]
     Active Substance: LORAZEPAM
  4. TYLENOL [Concomitant]
     Active Substance: ACETAMINOPHEN
  5. ATENOLOL. [Concomitant]
     Active Substance: ATENOLOL
  6. LATANOPROST. [Concomitant]
     Active Substance: LATANOPROST
  7. COUMADIN [Concomitant]
     Active Substance: WARFARIN SODIUM
  8. PILOCARPINE [Concomitant]
     Active Substance: PILOCARPINE

REACTIONS (1)
  - Diarrhoea [Unknown]
